FAERS Safety Report 8438992-6 (Version None)
Quarter: 2012Q2

REPORT INFORMATION
  Report Type: 
  Country: None (occurrence: None)
  Receive Date: 20120608
  Receipt Date: 20120603
  Transmission Date: 20120825
  Serious: Yes (Other)
  Sender: FDA-Public Use
  Company Number: A0979993A

PATIENT

DRUGS (2)
  1. BISMUTH SUBSALICYLATE [Suspect]
     Indication: PRODUCT USED FOR UNKNOWN INDICATION
  2. CALCIUM CARBONATE [Suspect]
     Indication: PRODUCT USED FOR UNKNOWN INDICATION

REACTIONS (1)
  - DRUG DEPENDENCE [None]
